FAERS Safety Report 8314428 (Version 9)
Quarter: 2013Q1

REPORT INFORMATION
  Report Type: Report from Study
  Country: GB (occurrence: GB)
  Receive Date: 20111228
  Receipt Date: 20130226
  Transmission Date: 20140127
  Serious: Yes (Death, Other)
  Sender: FDA-Public Use
  Company Number: PHHO2011GB020914

PATIENT
  Sex: 0

DRUGS (13)
  1. UNSPECIFIED [Suspect]
     Indication: HEPATITIS C
     Dosage: 180 MG, QW
     Route: 058
     Dates: start: 20110906, end: 20111206
  2. CITALOPRAM [Suspect]
     Indication: DEPRESSION
     Dosage: 20 MG, QD
     Dates: start: 20111128, end: 20111208
  3. PLACEBO [Suspect]
     Indication: HEPATITIS C
     Dosage: UNK
     Route: 048
     Dates: start: 20110906, end: 20111212
  4. RIBAVIRIN [Concomitant]
     Dosage: 600 MG, BID
     Route: 048
     Dates: start: 20110906, end: 20111212
  5. LISINOPRIL [Concomitant]
     Indication: HYPERTENSION
     Dosage: 20 MG, QD
     Route: 048
     Dates: start: 201011
  6. CALCICHEW [Concomitant]
     Indication: BONE DENSITY DECREASED
     Dates: start: 201109
  7. METOCLOPRAMIDE [Concomitant]
     Indication: NAUSEA
     Dosage: 10 MG, TID
     Dates: start: 20110913
  8. IBUPROFEN [Concomitant]
     Indication: CHEST PAIN
     Dosage: 400 MG, PRN
     Dates: start: 20110925
  9. PARACETAMOL [Concomitant]
     Indication: CHEST PAIN
     Dates: start: 20110913
  10. ZOPICLONE [Concomitant]
  11. ASPIRIN [Concomitant]
     Indication: ISCHAEMIC HEART DISEASE PROPHYLAXIS
  12. MULTIVITAMINS [Concomitant]
  13. THYROXINE [Concomitant]
     Indication: HYPOTHYROIDISM

REACTIONS (4)
  - Completed suicide [Fatal]
  - Depression [Recovered/Resolved]
  - Anxiety [Recovered/Resolved]
  - Drug interaction [Recovered/Resolved]
